FAERS Safety Report 5605811-2 (Version None)
Quarter: 2008Q1

REPORT INFORMATION
  Report Type: 
  Country: None (occurrence: None)
  Receive Date: 20080123
  Receipt Date: 20080114
  Transmission Date: 20080703
  Serious: Yes (Other)
  Sender: FDA-Public Use
  Company Number: 2008001498

PATIENT
  Age: 4 Year
  Sex: Female

DRUGS (1)
  1. PURELL (ETHYL ALCOHOL) [Suspect]
     Dosage: UNSPECIFIED,TOPICAL
     Route: 061

REACTIONS (4)
  - CAUSTIC INJURY [None]
  - ERYTHEMA [None]
  - PAIN [None]
  - SKIN INFLAMMATION [None]
